FAERS Safety Report 6238861-6 (Version None)
Quarter: 2009Q2

REPORT INFORMATION
  Report Type: 
  Country: None (occurrence: None)
  Receive Date: 20090617
  Receipt Date: 20080115
  Transmission Date: 20091009
  Serious: No
  Sender: FDA-Public Use
  Company Number: 271098

PATIENT
  Age: 67 Year
  Sex: Male

DRUGS (3)
  1. LEVEMIR [Suspect]
     Indication: TYPE 1 DIABETES MELLITUS
     Dosage: 15 IU, QD, SUBCUTANEOUS ; 22 IU, QD, SUBCUTANEOUS
     Route: 058
     Dates: start: 20080108, end: 20080113
  2. LEVEMIR [Suspect]
     Indication: TYPE 1 DIABETES MELLITUS
     Dosage: 15 IU, QD, SUBCUTANEOUS ; 22 IU, QD, SUBCUTANEOUS
     Route: 058
     Dates: start: 20080114
  3. HUMALOG /00030501/(INSULIN) [Concomitant]

REACTIONS (1)
  - BLOOD GLUCOSE INCREASED [None]
